FAERS Safety Report 7559166-7 (Version None)
Quarter: 2011Q2

REPORT INFORMATION
  Report Type: 
  Country: None (occurrence: None)
  Receive Date: 20110621
  Receipt Date: 20110615
  Transmission Date: 20111010
  Serious: Yes (Other)
  Sender: FDA-Public Use
  Company Number: BR-PFIZER INC-2011131332

PATIENT
  Age: 30 Year
  Sex: Male

DRUGS (1)
  1. VIAGRA [Suspect]
     Dosage: 400 - 500MG
     Route: 048

REACTIONS (2)
  - INCORRECT DOSE ADMINISTERED [None]
  - RHABDOMYOLYSIS [None]
